FAERS Safety Report 12520136 (Version 2)
Quarter: 2016Q3

REPORT INFORMATION
  Report Type: Report from Study
  Country: IE (occurrence: IE)
  Receive Date: 20160630
  Receipt Date: 20160719
  Transmission Date: 20161109
  Serious: Yes (Hospitalization)
  Sender: FDA-Public Use
  Company Number: IE-AMGEN-IRLSL2015061496

PATIENT
  Age: 57 Year
  Sex: Female

DRUGS (11)
  1. MOTILIUM [Concomitant]
     Active Substance: DOMPERIDONE
     Dosage: 10 MG, PRN (AS REQUIRED)
     Route: 050
  2. DEXAMETHASONE. [Concomitant]
     Active Substance: DEXAMETHASONE
     Dosage: 4 MG, AS PER CHEMO PRESCRIPTION
     Route: 050
  3. VALOID [Concomitant]
     Active Substance: CYCLIZINE HYDROCHLORIDE
     Dosage: 50 MG, PRN (AS REQUIRED)
     Route: 050
  4. ELTROXIN [Concomitant]
     Active Substance: LEVOTHYROXINE
     Dosage: 150 MUG, ONCE DAILY
  5. NEUPOGEN [Suspect]
     Active Substance: FILGRASTIM
     Indication: PRODUCT USED FOR UNKNOWN INDICATION
     Dosage: UNK, POST FIRST CYCLE OF TREATMENT
     Route: 065
  6. SENOKOT [Concomitant]
     Active Substance: SENNOSIDES
     Dosage: 2 MG, PRN (AS REQUIRED)
     Route: 050
  7. OXYCONTIN [Concomitant]
     Active Substance: OXYCODONE HYDROCHLORIDE
     Dosage: 10 MG, BD
     Route: 050
  8. ELTROXIN [Concomitant]
     Active Substance: LEVOTHYROXINE
     Dosage: 150 MUG, ON ALTERNATE DAYS
     Route: 050
  9. NEULASTA [Suspect]
     Active Substance: PEGFILGRASTIM
     Indication: BREAST CANCER
     Dosage: 6 MG, POST CHEMOTHERAPY 3 WEEKLY CYCLE
     Route: 058
     Dates: start: 20150528
  10. LYRICA [Concomitant]
     Active Substance: PREGABALIN
     Dosage: 75 MG, B.D
     Route: 050
  11. OXYNORM [Concomitant]
     Active Substance: OXYCODONE HYDROCHLORIDE
     Dosage: 5 MG, PRN (AS REQUIRED)
     Route: 050

REACTIONS (6)
  - Malaise [Recovered/Resolved]
  - Erythema [Recovered/Resolved]
  - Arthralgia [Recovering/Resolving]
  - Bone pain [Recovering/Resolving]
  - Flank pain [Not Recovered/Not Resolved]
  - Oral mucosal blistering [Unknown]

NARRATIVE: CASE EVENT DATE: 20150529
